FAERS Safety Report 5020510-6 (Version None)
Quarter: 2006Q2

REPORT INFORMATION
  Report Type: 
  Country: None (occurrence: None)
  Receive Date: 20060607
  Receipt Date: 20060510
  Transmission Date: 20061013
  Serious: Yes (Hospitalization, Other)
  Sender: FDA-Public Use
  Company Number: US-AVENTIS-200614753US

PATIENT
  Age: 84 Year
  Sex: Male

DRUGS (13)
  1. LANTUS [Suspect]
     Indication: DIABETES MELLITUS
     Dates: start: 20050725
  2. LANTUS [Suspect]
  3. LANTUS [Suspect]
  4. LANTUS [Suspect]
  5. LANTUS [Suspect]
  6. OPTICLIK (INSULIN INJECTION PEN) [Suspect]
     Indication: DIABETES MELLITUS
     Dates: start: 20051101
  7. HUMALOG [Concomitant]
     Dosage: DOSE: UNK
  8. COREG [Concomitant]
     Dosage: DOSE: UNK
  9. GABAPENTIN [Concomitant]
     Dosage: DOSE: UNK
  10. COUMADIN [Concomitant]
     Dosage: DOSE: UNK
  11. LISINOPRIL [Concomitant]
     Dosage: DOSE: UNK
  12. ZOCOR [Concomitant]
     Dosage: DOSE: UNK
  13. ANALGESICS [Concomitant]
     Dosage: DOSE: UNK

REACTIONS (11)
  - BASAL CELL CARCINOMA [None]
  - BLOOD GLUCOSE INCREASED [None]
  - BLOOD POTASSIUM INCREASED [None]
  - CARDIAC FAILURE CONGESTIVE [None]
  - JOINT SWELLING [None]
  - MEDICAL DEVICE COMPLICATION [None]
  - MOLE EXCISION [None]
  - PHARMACEUTICAL PRODUCT COMPLAINT [None]
  - PLEURAL EFFUSION [None]
  - RENAL FAILURE [None]
  - WEIGHT DECREASED [None]
